FAERS Safety Report 16854935 (Version 1)
Quarter: 2019Q3

REPORT INFORMATION
  Report Type: Spontaneous
  Country: US (occurrence: US)
  Receive Date: 20190805
  Receipt Date: 20190805
  Transmission Date: 20191005
  Serious: Yes (Congenital Anomaly)
  Sender: FDA-Public Use
  Company Number: None

PATIENT
  Age: 37 Year
  Sex: Female
  Weight: 95.25 kg

DRUGS (4)
  1. COD LIVER OIL [Concomitant]
     Active Substance: COD LIVER OIL
  2. CIPROFLOXACIN HCL ORAL TABLET 500 MG [Suspect]
     Active Substance: CIPROFLOXACIN HYDROCHLORIDE
     Indication: KIDNEY INFECTION
     Dosage: ?          QUANTITY:10-DAY PRESCRIPTIO;?
     Route: 048
     Dates: start: 20180404, end: 20180418
  3. MULTIVITAMIN [Concomitant]
     Active Substance: VITAMINS
  4. CIPROFLOXACIN HCL ORAL TABLET 500 MG [Suspect]
     Active Substance: CIPROFLOXACIN HYDROCHLORIDE
     Indication: HAEMATURIA
     Dosage: ?          QUANTITY:10-DAY PRESCRIPTIO;?
     Route: 048
     Dates: start: 20180404, end: 20180418

REACTIONS (2)
  - Stillbirth [None]
  - Exposure during pregnancy [None]

NARRATIVE: CASE EVENT DATE: 20180824
